FAERS Safety Report 20190460 (Version 1)
Quarter: 2021Q4

REPORT INFORMATION
  Report Type: Report from Study
  Country: CA (occurrence: CA)
  Receive Date: 20211215
  Receipt Date: 20211215
  Transmission Date: 20220303
  Serious: Yes (Other)
  Sender: FDA-Public Use
  Company Number: CA-JNJFOC-20211219654

PATIENT
  Sex: Female

DRUGS (1)
  1. REMICADE [Suspect]
     Active Substance: INFLIXIMAB
     Indication: Crohn^s disease
     Dosage: ON HOLD
     Route: 042
     Dates: start: 20150928, end: 20211020

REACTIONS (2)
  - Spinal compression fracture [Unknown]
  - Lung adenocarcinoma [Not Recovered/Not Resolved]
